FAERS Safety Report 6999602 (Version 4)
Quarter: 2015Q2

REPORT INFORMATION
  Report Type: Report from Study
  Country: GB (occurrence: GB)
  Receive Date: 20090521
  Receipt Date: 20150617
  Transmission Date: 20150821
  Serious: Yes (Other)
  Sender: FDA-Public Use
  Company Number: GB-NOVOPROD-287136

PATIENT
  Age: 12 Year
  Sex: Male

DRUGS (4)
  1. HYDROCORTISONE. [Concomitant]
     Active Substance: HYDROCORTISONE
     Dosage: 12.5 MG, QD (7.5 + 5 MG)
     Route: 048
  2. NORDITROPIN [Suspect]
     Active Substance: SOMATROPIN
     Indication: HYPOPITUITARISM
     Dosage: 1.8 MG, QD
     Route: 058
     Dates: start: 20080601, end: 200901
  3. DESMOTABS [Concomitant]
     Active Substance: DESMOPRESSIN
     Dosage: 0.5 MG, QD (0.1, 0.1 + 0.3 MG)
     Route: 048
  4. THYROXINE [Concomitant]
     Active Substance: LEVOTHYROXINE
     Dosage: 75 MG, QD
     Route: 048

REACTIONS (1)
  - Neoplasm progression [Not Recovered/Not Resolved]

NARRATIVE: CASE EVENT DATE: 20090115
